FAERS Safety Report 25267745 (Version 1)
Quarter: 2025Q2

REPORT INFORMATION
  Report Type: Spontaneous
  Country: US (occurrence: None)
  Receive Date: 20250501
  Receipt Date: 20250501
  Transmission Date: 20250716
  Serious: No
  Sender: FDA-CTU
  Company Number: None

PATIENT

DRUGS (1)
  1. DULOXETINE [Suspect]
     Active Substance: DULOXETINE

REACTIONS (4)
  - Headache [None]
  - Constipation [None]
  - Sexual dysfunction [None]
  - Gastrointestinal disorder [None]

NARRATIVE: CASE EVENT DATE: 20250430
